FAERS Safety Report 4901834-7 (Version None)
Quarter: 2006Q1

REPORT INFORMATION
  Report Type: 
  Country: None (occurrence: None)
  Receive Date: 20060203
  Receipt Date: 20060203
  Transmission Date: 20060701
  Serious: Yes (Hospitalization)
  Sender: FDA-Public Use
  Company Number: None

PATIENT
  Age: 75 Year
  Sex: Female
  Weight: 68 kg

DRUGS (20)
  1. AMIODARONE  200MG [Suspect]
     Indication: ATRIAL FIBRILLATION
     Dosage: 200MG  ONCE DAILY PO
     Route: 048
  2. ZOFRAN [Concomitant]
  3. LORAZEPAM [Concomitant]
  4. LEVOTHYROXINE SODIUM [Concomitant]
  5. PROTONIX [Concomitant]
  6. VALSARTAN [Concomitant]
  7. REGULAR INSULIN [Concomitant]
  8. HYDROMORPHONE HCL [Concomitant]
  9. LEVAQUIN [Concomitant]
  10. METRONIDAZOLE [Concomitant]
  11. PROMETHAZINE [Concomitant]
  12. METOCLOPRAMIDE [Concomitant]
  13. TPN [Concomitant]
  14. LIPOSYN [Concomitant]
  15. APAP TAB [Concomitant]
  16. ALBUTEROL [Concomitant]
  17. FUROSEMIDE [Concomitant]
  18. LOVENOX [Concomitant]
  19. ZOSYN [Concomitant]
  20. VANCOMYCIN [Concomitant]

REACTIONS (2)
  - DYSPNOEA [None]
  - PNEUMONITIS [None]
